FAERS Safety Report 17189891 (Version 1)
Quarter: 2019Q4

REPORT INFORMATION
  Report Type: Report from Study
  Country: BE (occurrence: BE)
  Receive Date: 20191223
  Receipt Date: 20191223
  Transmission Date: 20200122
  Serious: Yes (Hospitalization)
  Sender: FDA-Public Use
  Company Number: BE-IPSEN BIOPHARMACEUTICALS, INC.-2019-24185

PATIENT
  Age: 37 Year
  Sex: Male

DRUGS (2)
  1. SOMATULINE AUTOGEL [Suspect]
     Active Substance: LANREOTIDE ACETATE
     Indication: OFF LABEL USE
  2. SOMATULINE AUTOGEL [Suspect]
     Active Substance: LANREOTIDE ACETATE
     Indication: PANCREATIC CARCINOMA
     Route: 058
     Dates: start: 20190806

REACTIONS (4)
  - Gallbladder disorder [Unknown]
  - Off label use [Unknown]
  - Drug ineffective [Unknown]
  - Jaundice [Unknown]

NARRATIVE: CASE EVENT DATE: 2019
